FAERS Safety Report 9469621 (Version 1)
Quarter: 2013Q3

REPORT INFORMATION
  Report Type: Spontaneous
  Country: US (occurrence: US)
  Receive Date: 20130822
  Receipt Date: 20130822
  Transmission Date: 20140515
  Serious: No
  Sender: FDA-Public Use
  Company Number: US-009507513-1308USA009158

PATIENT
  Age: 31 Year
  Sex: Male

DRUGS (1)
  1. SAPHRIS [Suspect]
     Indication: SCHIZOPHRENIA
     Dosage: 10 MG, BID (TWICE A DAY), RAPID DISSOLVE 10
     Route: 048

REACTIONS (1)
  - Dysphemia [Not Recovered/Not Resolved]
